FAERS Safety Report 13268194 (Version 3)
Quarter: 2017Q1

REPORT INFORMATION
  Report Type: Spontaneous
  Country: PT (occurrence: PT)
  Receive Date: 20170224
  Receipt Date: 20170314
  Transmission Date: 20170428
  Serious: Yes (Hospitalization, Other)
  Sender: FDA-Public Use
  Company Number: PT-PFIZER INC-2015141721

PATIENT
  Age: 83 Year
  Sex: Female

DRUGS (3)
  1. XALATAN [Suspect]
     Active Substance: LATANOPROST
     Indication: GLAUCOMA
     Dosage: 1 DROP  BOTH EYES, DAILY
     Route: 047
     Dates: start: 201502
  2. OCULOTECT [Concomitant]
     Dosage: UNK
     Route: 047
  3. JANUVIA [Concomitant]
     Active Substance: SITAGLIPTIN PHOSPHATE
     Indication: DIABETES MELLITUS
     Dosage: 1 DF, 1X/DAY
     Route: 048
     Dates: start: 2010

REACTIONS (3)
  - Foreign body sensation in eyes [Not Recovered/Not Resolved]
  - Cerebrovascular accident [Recovered/Resolved]
  - Visual impairment [Not Recovered/Not Resolved]

NARRATIVE: CASE EVENT DATE: 201502
